FAERS Safety Report 17000850 (Version 1)
Quarter: 2019Q4

REPORT INFORMATION
  Report Type: Spontaneous
  Country: US (occurrence: US)
  Receive Date: 20191106
  Receipt Date: 20191106
  Transmission Date: 20200122
  Serious: No
  Sender: FDA-Public Use
  Company Number: US-PURDUE-USA-2019-0145695

PATIENT
  Sex: Female

DRUGS (2)
  1. MORPHINE SULFATE (SIMILAR TO NDA 19-516) [Suspect]
     Active Substance: MORPHINE SULFATE
     Dosage: 15 MG, HS
     Route: 048
     Dates: end: 2018
  2. MORPHINE SULFATE (SIMILAR TO NDA 19-516) [Suspect]
     Active Substance: MORPHINE SULFATE
     Indication: PAIN
     Dosage: 15 MG, BID
     Route: 048
     Dates: start: 2018

REACTIONS (3)
  - Intentional underdose [Recovered/Resolved]
  - Personality change [Recovered/Resolved]
  - Feeling abnormal [Recovered/Resolved]

NARRATIVE: CASE EVENT DATE: 2018
